FAERS Safety Report 12743788 (Version 3)
Quarter: 2016Q4

REPORT INFORMATION
  Report Type: Spontaneous
  Country: BR (occurrence: BR)
  Receive Date: 20160914
  Receipt Date: 20161115
  Transmission Date: 20170207
  Serious: Yes (Other)
  Sender: FDA-Public Use
  Company Number: PHHY2016BR124276

PATIENT
  Age: 25 Year
  Sex: Female
  Weight: 53 kg

DRUGS (4)
  1. NEOSALDINA [Concomitant]
     Active Substance: CAFFEINE\ISOMETHEPTENE\METHIMAZOLE
     Indication: DIZZINESS
  2. PARACETAMOL [Concomitant]
     Active Substance: ACETAMINOPHEN
     Indication: DIZZINESS
     Dosage: 30 DRP, UNK
     Route: 065
  3. LIZZY [Suspect]
     Active Substance: ETHINYL ESTRADIOL\GESTODENE
     Indication: CONTRACEPTION
     Dosage: 0.060 MG, QD
     Route: 048
     Dates: start: 201308, end: 20160811
  4. NEOSALDINA [Concomitant]
     Active Substance: CAFFEINE\ISOMETHEPTENE\METHIMAZOLE
     Indication: HEADACHE
     Dosage: 1 UNK, TID
     Route: 065

REACTIONS (7)
  - Toxicity to various agents [Unknown]
  - Concomitant disease aggravated [Recovered/Resolved]
  - Thrombosis [Unknown]
  - Varicose vein [Unknown]
  - Eye pain [Not Recovered/Not Resolved]
  - Feeling abnormal [Unknown]
  - Migraine [Recovered/Resolved]

NARRATIVE: CASE EVENT DATE: 20150918
